FAERS Safety Report 16648997 (Version 1)
Quarter: 2019Q3

REPORT INFORMATION
  Report Type: Spontaneous
  Country: IN (occurrence: IN)
  Receive Date: 20190730
  Receipt Date: 20190730
  Transmission Date: 20191004
  Serious: Yes (Other)
  Sender: FDA-Public Use
  Company Number: IN-TAKEDA-2019TUS045410

PATIENT
  Age: 7 Year
  Sex: Female

DRUGS (7)
  1. PONATINIB [Suspect]
     Active Substance: PONATINIB
     Indication: CHRONIC MYELOID LEUKAEMIA
     Dosage: 15 MILLIGRAM
     Route: 065
  2. ACIVIR                             /00587301/ [Concomitant]
     Dosage: UNK
  3. MERCAPTOPURINE. [Concomitant]
     Active Substance: MERCAPTOPURINE
     Dosage: UNK
  4. LEVIPIL [Concomitant]
     Active Substance: LEVETIRACETAM
     Dosage: UNK
  5. NICARDIA [Concomitant]
     Dosage: UNK
  6. HYDREA [Concomitant]
     Active Substance: HYDROXYUREA
     Dosage: UNK
  7. SEPTRAN                            /00086101/ [Concomitant]
     Dosage: UNK

REACTIONS (15)
  - Decreased appetite [Recovering/Resolving]
  - Weight decreased [Recovered/Resolved]
  - Off label use [Unknown]
  - Splenomegaly [Recovering/Resolving]
  - Lung consolidation [Recovering/Resolving]
  - Adverse drug reaction [Recovering/Resolving]
  - Bone pain [Recovering/Resolving]
  - Dark circles under eyes [Recovering/Resolving]
  - Asthenia [Recovering/Resolving]
  - Pyrexia [Recovering/Resolving]
  - Constipation [Recovering/Resolving]
  - Gastrointestinal pain [Recovering/Resolving]
  - Hypertension [Recovering/Resolving]
  - Diarrhoea [Recovering/Resolving]
  - Mouth ulceration [Recovering/Resolving]
